FAERS Safety Report 21541849 (Version 1)
Quarter: 2022Q4

REPORT INFORMATION
  Report Type: Spontaneous
  Country: CN (occurrence: CN)
  Receive Date: 20221102
  Receipt Date: 20221102
  Transmission Date: 20230113
  Serious: Yes (Other)
  Sender: FDA-Public Use
  Company Number: None

PATIENT
  Age: 52 Year
  Sex: Male

DRUGS (16)
  1. CYCLOPHOSPHAMIDE [Suspect]
     Active Substance: CYCLOPHOSPHAMIDE
     Indication: Plasma cell myeloma
     Dosage: 0.8 G, QD, (DILUTED WITH 0.9% SODIUM CHLORIDE INJECTION 100 ML )
     Route: 041
     Dates: start: 20221011, end: 20221014
  2. CYCLOPHOSPHAMIDE [Suspect]
     Active Substance: CYCLOPHOSPHAMIDE
     Indication: Neoplasm malignant
  3. SODIUM CHLORIDE [Suspect]
     Active Substance: SODIUM CHLORIDE
     Indication: Medication dilution
     Dosage: 100 ML, QD, (USED TO DILUTE CYCLOPHOSPHAMIDE  0.8 G)
     Route: 041
     Dates: start: 20221011, end: 20221014
  4. SODIUM CHLORIDE [Suspect]
     Active Substance: SODIUM CHLORIDE
     Dosage: 500 ML, QD, (USED TO DILUTE ETOPOSIDE INJECTION 0.08 G)
     Route: 041
     Dates: start: 20221011, end: 20221014
  5. SODIUM CHLORIDE [Suspect]
     Active Substance: SODIUM CHLORIDE
     Dosage: 100 ML, QD, (USED TO DILUTE  EPIRUBICIN  30 MG)
     Route: 041
     Dates: start: 20221011, end: 20221014
  6. SODIUM CHLORIDE [Suspect]
     Active Substance: SODIUM CHLORIDE
     Dosage: 100 ML, QD, (USED TO DILUTE CISPLATIN 20 MG)
     Route: 041
     Dates: start: 20221011, end: 20221014
  7. DEXTROSE MONOHYDRATE [Suspect]
     Active Substance: DEXTROSE MONOHYDRATE
     Indication: Medication dilution
     Dosage: 100 ML, QD, (DILUTED WITH CARFILZOMIB 44 MG), (CHEMOTHERAPY VIA LEFT ARM PICC TUBE)
     Route: 041
     Dates: start: 20221011, end: 20221014
  8. ETOPOSIDE [Suspect]
     Active Substance: ETOPOSIDE
     Indication: Plasma cell myeloma
     Dosage: 0.08 G, QD, (DILUTED WITH 0.9% SODIUM CHLORIDE INJECTION 500 ML )
     Route: 041
     Dates: start: 20221011, end: 20221014
  9. ETOPOSIDE [Suspect]
     Active Substance: ETOPOSIDE
     Indication: Neoplasm malignant
  10. CARFILZOMIB [Suspect]
     Active Substance: CARFILZOMIB
     Indication: Plasma cell myeloma
     Dosage: 44 MG, QD, (DILUTED WITH  5% GLUCOSE INJECTION 100 ML ), (CHEMOTHERAPY VIA LEFT ARM PICC TUBE), SELF
     Route: 041
     Dates: start: 20221011, end: 20221012
  11. CARFILZOMIB [Suspect]
     Active Substance: CARFILZOMIB
     Indication: Neoplasm malignant
  12. EPIRUBICIN [Suspect]
     Active Substance: EPIRUBICIN
     Indication: Plasma cell myeloma
     Dosage: 30 MG, QD (DILUTED WITH 0.9% SODIUM CHLORIDE INJECTION 100 ML )
     Route: 041
     Dates: start: 20221011, end: 20221014
  13. EPIRUBICIN [Suspect]
     Active Substance: EPIRUBICIN
     Indication: Neoplasm malignant
  14. CISPLATIN [Suspect]
     Active Substance: CISPLATIN
     Indication: Plasma cell myeloma
     Dosage: 20 MG, QD, (DILUTED WITH 0.9% SODIUM CHLORIDE INJECTION 100 ML )
     Route: 041
     Dates: start: 20221011, end: 20221014
  15. CISPLATIN [Suspect]
     Active Substance: CISPLATIN
     Indication: Neoplasm malignant
  16. MOLGRAMOSTIM [Concomitant]
     Active Substance: MOLGRAMOSTIM
     Indication: Product used for unknown indication
     Dosage: 300 UG, QD
     Route: 058
     Dates: start: 20221015, end: 20221017

REACTIONS (1)
  - Myelosuppression [Recovering/Resolving]

NARRATIVE: CASE EVENT DATE: 20221019
